FAERS Safety Report 5673076-1 (Version None)
Quarter: 2008Q1

REPORT INFORMATION
  Report Type: 
  Country: None (occurrence: None)
  Receive Date: 20080317
  Receipt Date: 20080229
  Transmission Date: 20080703
  Serious: Yes (Hospitalization)
  Sender: FDA-Public Use
  Company Number: DSA_31579_2008

PATIENT
  Sex: Female

DRUGS (2)
  1. TEMESTA /00273201/ (TEMESTA - LORAZEPAM) (NOT SPECIFIED) [Suspect]
     Dosage: (50 MG 1X ORAL)
     Route: 048
     Dates: start: 20070827, end: 20070827
  2. ETHANOL (ALCOHOL (ETHANOL)) [Suspect]
     Dates: start: 20070827, end: 20070827

REACTIONS (8)
  - ALCOHOL USE [None]
  - COMA [None]
  - DEPRESSION [None]
  - EYELID OEDEMA [None]
  - LOSS OF CONSCIOUSNESS [None]
  - MYDRIASIS [None]
  - OVERDOSE [None]
  - SUICIDE ATTEMPT [None]
